FAERS Safety Report 8777100 (Version 2)
Quarter: 2012Q4

REPORT INFORMATION
  Report Type: 
  Country: NL (occurrence: NL)
  Receive Date: 20120911
  Receipt Date: 20121023
  Transmission Date: 20130627
  Serious: Yes (Hospitalization)
  Sender: FDA-Public Use
  Company Number: PHHY2012NL078089

PATIENT
  Age: 51 Year
  Sex: Female
  Weight: 48 kg

DRUGS (4)
  1. SANDOSTATINE LAR [Suspect]
     Indication: GASTROINTESTINAL DISORDER
     Dosage: 1x 30mg once per 4 weeks
     Dates: start: 20080814
  2. ANALGESICS/PAIN KILLERS [Concomitant]
  3. ANTIBIOTICS [Concomitant]
  4. MORPHINE [Concomitant]

REACTIONS (5)
  - Acidosis [Unknown]
  - Renal failure acute [Unknown]
  - Renal impairment [Unknown]
  - Dehydration [Unknown]
  - General physical health deterioration [Unknown]
